FAERS Safety Report 10739987 (Version 1)
Quarter: 2015Q1

REPORT INFORMATION
  Report Type: Spontaneous
  Country: US (occurrence: US)
  Receive Date: 20150127
  Receipt Date: 20150127
  Transmission Date: 20150721
  Serious: Yes (Hospitalization, Other)
  Sender: FDA-Public Use
  Company Number: US-JNJFOC-20150111657

PATIENT
  Age: 25 Year
  Sex: Female

DRUGS (3)
  1. ETHANOL [Suspect]
     Active Substance: ALCOHOL
     Indication: SUICIDE ATTEMPT
     Route: 048
  2. TYLENOL [Suspect]
     Active Substance: ACETAMINOPHEN
     Indication: SUICIDE ATTEMPT
     Dosage: 60 TABLETS, ESTIMATE, AT MIDNIGHT
     Route: 048
     Dates: start: 20140807
  3. TYLENOL [Suspect]
     Active Substance: ACETAMINOPHEN
     Route: 048

REACTIONS (9)
  - Abdominal pain [Recovering/Resolving]
  - Intentional overdose [Recovering/Resolving]
  - Liver function test abnormal [Recovering/Resolving]
  - Prothrombin time prolonged [Recovering/Resolving]
  - Vomiting [Recovering/Resolving]
  - Confusional state [Recovered/Resolved]
  - Anxiety [Recovering/Resolving]
  - Nausea [Recovering/Resolving]
  - Blood bilirubin increased [Recovering/Resolving]

NARRATIVE: CASE EVENT DATE: 20140807
